FAERS Safety Report 15883695 (Version 1)
Quarter: 2019Q1

REPORT INFORMATION
  Report Type: Spontaneous
  Country: US (occurrence: US)
  Receive Date: 20190129
  Receipt Date: 20190129
  Transmission Date: 20190417
  Serious: Yes (Other)
  Sender: FDA-Public Use
  Company Number: PHEH2019US003619

PATIENT
  Sex: Female

DRUGS (1)
  1. AMOXICILLIN+POTASSIUM [Suspect]
     Active Substance: AMOXICILLIN\CLAVULANATE POTASSIUM
     Indication: PRODUCT USED FOR UNKNOWN INDICATION
     Dosage: 625 MG (500/125), BID
     Route: 065
     Dates: start: 20190122

REACTIONS (1)
  - Diarrhoea [Unknown]
